FAERS Safety Report 24217343 (Version 6)
Quarter: 2025Q4

REPORT INFORMATION
  Report Type: Report from Study
  Country: CA (occurrence: CA)
  Receive Date: 20240816
  Receipt Date: 20251127
  Transmission Date: 20260118
  Serious: Yes (Other)
  Sender: CELLTRION
  Company Number: CA-CELLTRION INC.-2023CA024375

PATIENT

DRUGS (10)
  1. ADALIMUMAB-AATY [Suspect]
     Active Substance: ADALIMUMAB-AATY
     Indication: Ankylosing spondylitis
     Dosage: UNK
  2. ADALIMUMAB-AATY [Suspect]
     Active Substance: ADALIMUMAB-AATY
     Dosage: 40 MG, Q2WEEKS
     Route: 058
     Dates: start: 20231208
  3. ADALIMUMAB-AATY [Suspect]
     Active Substance: ADALIMUMAB-AATY
     Dosage: MOST RECENT: 40 MG, Q2WEEKS
     Route: 058
     Dates: start: 20240731
  4. METFORMIN [Concomitant]
     Active Substance: METFORMIN HYDROCHLORIDE
     Dosage: 2 TABS TWICE DAILY 500 MG
  5. AGOMELATINE [Concomitant]
     Active Substance: AGOMELATINE
     Dosage: 25 MG DAILY IN EVENING
  6. ROSUVASTATIN [Concomitant]
     Active Substance: ROSUVASTATIN
     Dosage: 10 MG DAILY AT BEDTIME
  7. TOPIRAMATE [Concomitant]
     Active Substance: TOPIRAMATE
     Dosage: 2 TABS TWICE DAILY
  8. TOPIRAMATE [Concomitant]
     Active Substance: TOPIRAMATE
     Dosage: 2 DOSAGE FORMS
  9. ROSUVASTATIN [Concomitant]
     Active Substance: ROSUVASTATIN
     Dosage: 10.0 MILLIGRAM
  10. NORTRIPTYLINE [Concomitant]
     Active Substance: NORTRIPTYLINE

REACTIONS (11)
  - Immunodeficiency [Not Recovered/Not Resolved]
  - Needle issue [Not Recovered/Not Resolved]
  - Device malfunction [Not Recovered/Not Resolved]
  - Pain [Not Recovered/Not Resolved]
  - COVID-19 [Not Recovered/Not Resolved]
  - Cough [Not Recovered/Not Resolved]
  - Headache [Not Recovered/Not Resolved]
  - Dyspnoea [Not Recovered/Not Resolved]
  - Nasopharyngitis [Unknown]
  - Influenza [Unknown]
  - Product dose omission issue [Unknown]

NARRATIVE: CASE EVENT DATE: 20250901
